FAERS Safety Report 21299769 (Version 1)
Quarter: 2022Q3

REPORT INFORMATION
  Report Type: Spontaneous
  Country: US (occurrence: US)
  Receive Date: 20220906
  Receipt Date: 20220906
  Transmission Date: 20221027
  Serious: Yes (Life-Threatening)
  Sender: FDA-Public Use
  Company Number: US-PFIZER INC-202201114734

PATIENT
  Age: 78 Year
  Sex: Female

DRUGS (1)
  1. DEPO-ESTRADIOL [Suspect]
     Active Substance: ESTRADIOL CYPIONATE
     Dosage: UNK
     Dates: end: 202205

REACTIONS (13)
  - Circumstance or information capable of leading to medication error [Unknown]
  - Nightmare [Unknown]
  - Weight decreased [Unknown]
  - Injury [Unknown]
  - Feeling abnormal [Unknown]
  - Malaise [Unknown]
  - Illness [Unknown]
  - Hormone level abnormal [Unknown]
  - Blood oestrogen abnormal [Unknown]
  - Nerve injury [Unknown]
  - Limb injury [Unknown]
  - Limb injury [Unknown]
  - Buttock injury [Unknown]

NARRATIVE: CASE EVENT DATE: 20220501
